FAERS Safety Report 18505141 (Version 2)
Quarter: 2020Q4

REPORT INFORMATION
  Report Type: Spontaneous
  Country: US (occurrence: US)
  Receive Date: 20201116
  Receipt Date: 20201218
  Transmission Date: 20210114
  Serious: Yes (Hospitalization)
  Sender: FDA-Public Use
  Company Number: US-HORIZON-2020HZN01153

PATIENT
  Age: 15 Month
  Sex: Male
  Weight: 11.02 kg

DRUGS (7)
  1. HYDROCORTISONE. [Concomitant]
     Active Substance: HYDROCORTISONE
     Dosage: 2.5% TOPICAL OINTMENT, 1 APPLICATION, AFFECTED AREAS, BID, 3 REFILLS
     Route: 061
  2. CLOTRIMAZOLE. [Concomitant]
     Active Substance: CLOTRIMAZOLE
     Dosage: 1% TOPICAL CREAM, 1 APPLICATION, TOPICAL BID
     Route: 061
  3. ARGININE [Concomitant]
     Active Substance: ARGININE
  4. RAVICTI [Suspect]
     Active Substance: GLYCEROL PHENYLBUTYRATE
     Indication: ARGININOSUCCINATE LYASE DEFICIENCY
     Dosage: INITIALLY 0.75 ML THREE TIMES DAILY WITH MEALS. INCREASE OF MEDICATION TO 1ML WITH AE REPORT. FU...
     Route: 048
     Dates: start: 20190524
  5. ACETAMINOPHEN. [Concomitant]
     Active Substance: ACETAMINOPHEN
     Dosage: 160MG/5ML ORAL LIQUID, 130MG=4.0625 ML, 15MG/KG, PO, Q6HR, PRN/AS NEEDED, 1 REFILL ; AS NECESSARY
     Route: 050
  6. KETOCONAZOLE. [Concomitant]
     Active Substance: KETOCONAZOLE
     Dosage: TOPICAL 2% SHAMPOO, 1 APPLICATION, AFFECTED AREAS, QOTHERDAY, 5 REFILLS
     Route: 061
  7. ZINC OXIDE. [Concomitant]
     Active Substance: ZINC OXIDE
     Dosage: 30.6% TOPICAL CREAM, 1 REFILL

REACTIONS (7)
  - Feeling hot [Recovered/Resolved]
  - Ammonia increased [Recovered/Resolved]
  - Adenovirus test positive [Unknown]
  - Vomiting [Recovered/Resolved]
  - Platelet count increased [Recovered/Resolved]
  - Diarrhoea [Recovered/Resolved]
  - White blood cell count increased [Recovered/Resolved]

NARRATIVE: CASE EVENT DATE: 20200902
